FAERS Safety Report 6819927-6 (Version None)
Quarter: 2010Q3

REPORT INFORMATION
  Report Type: 
  Country: None (occurrence: None)
  Receive Date: 20100707
  Receipt Date: 20100623
  Transmission Date: 20110219
  Serious: Yes (Other)
  Sender: FDA-Public Use
  Company Number: IE-ROCHE-629220

PATIENT
  Sex: Female
  Weight: 1.2 kg

DRUGS (5)
  1. HERCEPTIN [Suspect]
     Indication: BREAST CANCER
     Dosage: DOSE: 2MG/KG EVERY WEEK FOR 6 WEEKS
     Route: 064
     Dates: start: 20050101, end: 20050101
  2. HERCEPTIN [Suspect]
     Route: 064
     Dates: start: 20050419, end: 20060101
  3. DOXORUBICIN HCL [Concomitant]
     Indication: BREAST CANCER
     Route: 064
  4. CYCLOPHOSPHAMIDE [Concomitant]
     Indication: BREAST CANCER
     Route: 064
  5. DOCETAXEL [Concomitant]
     Indication: BREAST CANCER
     Route: 064

REACTIONS (6)
  - CONDUCTIVE DEAFNESS [None]
  - HYPERREFLEXIA [None]
  - HYPERTONIA [None]
  - NEONATAL RESPIRATORY DISTRESS SYNDROME [None]
  - PREMATURE BABY [None]
  - TENDON DISORDER [None]
